FAERS Safety Report 14474656 (Version 1)
Quarter: 2018Q1

REPORT INFORMATION
  Report Type: Spontaneous
  Country: GB (occurrence: GB)
  Receive Date: 20180201
  Receipt Date: 20180201
  Transmission Date: 20180509
  Serious: Yes (Other)
  Sender: FDA-Public Use
  Company Number: GB-TEVA-2018-GB-852767

PATIENT
  Age: 40 Year
  Sex: Female
  Weight: 101.6 kg

DRUGS (4)
  1. PANTOPRAZOLE [Concomitant]
     Active Substance: PANTOPRAZOLE
  2. DESOGESTREL [Concomitant]
     Active Substance: DESOGESTREL
  3. METOCLOPRAMIDE. [Suspect]
     Active Substance: METOCLOPRAMIDE
     Indication: GASTROOESOPHAGEAL REFLUX DISEASE
     Dosage: 30 MILLIGRAM DAILY;
     Route: 048
     Dates: start: 20170401, end: 20171205
  4. LORATADINE. [Concomitant]
     Active Substance: LORATADINE

REACTIONS (4)
  - Heart rate increased [Recovering/Resolving]
  - Product prescribing issue [Unknown]
  - Akathisia [Recovering/Resolving]
  - Blood pressure increased [Recovering/Resolving]

NARRATIVE: CASE EVENT DATE: 20171205
